FAERS Safety Report 10829816 (Version 1)
Quarter: 2015Q1

REPORT INFORMATION
  Report Type: Report from Study
  Country: US (occurrence: US)
  Receive Date: 20150219
  Receipt Date: 20150219
  Transmission Date: 20150721
  Serious: Yes (Other)
  Sender: FDA-Public Use
  Company Number: US-ABBVIE-14P-163-1188259-00

PATIENT
  Age: 29 Year
  Sex: Male

DRUGS (4)
  1. OXYCODONE [Suspect]
     Active Substance: OXYCODONE
     Indication: PRODUCT USED FOR UNKNOWN INDICATION
     Dosage: TOOK FOR ONE AND DISCONTINUED
  2. UNKNOWN ANTIBIOTIC [Concomitant]
     Active Substance: UNSPECIFIED INGREDIENT
     Indication: PRODUCT USED FOR UNKNOWN INDICATION
     Dosage: TOOK PROPHYLACTIC ANTIBIOTIC FOR 10 DAYS POST OP
  3. TRAMADOL [Concomitant]
     Active Substance: TRAMADOL
     Indication: PRODUCT USED FOR UNKNOWN INDICATION
     Dosage: AS NEEDED
  4. HUMIRA [Suspect]
     Active Substance: ADALIMUMAB
     Indication: PSORIASIS
     Dates: start: 20131025

REACTIONS (4)
  - Psoriasis [Recovering/Resolving]
  - Nervousness [Recovered/Resolved]
  - Peripheral swelling [Unknown]
  - Limb operation [Recovering/Resolving]

NARRATIVE: CASE EVENT DATE: 20131025
